FAERS Safety Report 8163695-5 (Version None)
Quarter: 2012Q1

REPORT INFORMATION
  Report Type: 
  Country: None (occurrence: None)
  Receive Date: 20120224
  Receipt Date: 20120213
  Transmission Date: 20120608
  Serious: Yes (Other)
  Sender: FDA-Public Use
  Company Number: PHHY2012SG013378

PATIENT
  Sex: Female

DRUGS (2)
  1. IMATINIB MESYLATE [Suspect]
     Indication: CHRONIC MYELOID LEUKAEMIA
     Dosage: UNK UKN, UNK
  2. IMATINIB MESYLATE [Suspect]
     Dosage: 600 MG, UNK

REACTIONS (2)
  - OVARIAN DISORDER [None]
  - BLOOD FOLLICLE STIMULATING HORMONE INCREASED [None]
